FAERS Safety Report 9303146 (Version 3)
Quarter: 2013Q2

REPORT INFORMATION
  Report Type: Spontaneous
  Country: PT (occurrence: PT)
  Receive Date: 20130522
  Receipt Date: 20130613
  Transmission Date: 20140414
  Serious: Yes (Other)
  Sender: FDA-Public Use
  Company Number: PT-JNJFOC-20130507650

PATIENT
  Age: 51 Year
  Sex: Male

DRUGS (3)
  1. PREZISTA [Suspect]
     Indication: HIV INFECTION
     Route: 065
     Dates: start: 201302, end: 201305
  2. RITONAVIR [Suspect]
     Indication: HIV INFECTION
     Route: 065
  3. KIVEXA [Concomitant]
     Indication: HIV INFECTION
     Route: 065
     Dates: start: 2010

REACTIONS (2)
  - Thrombocytopenia [Recovering/Resolving]
  - Contusion [Unknown]
